FAERS Safety Report 8783519 (Version 1)
Quarter: 2012Q4

REPORT INFORMATION
  Report Type: Report from Study
  Country: US (occurrence: US)
  Receive Date: 20120913
  Receipt Date: 20120913
  Transmission Date: 20130627
  Serious: No
  Sender: FDA-Public Use
  Company Number: US-VERTEX PHARMACEUTICAL INC.-AE-2012-008606

PATIENT
  Age: 56 Year
  Sex: Female
  Weight: 49.91 kg

DRUGS (19)
  1. INCIVEK [Suspect]
     Indication: HEPATITIS C
     Route: 048
  2. RIBAVIRIN [Concomitant]
     Indication: HEPATITIS C
  3. PEGASYS [Concomitant]
     Indication: HEPATITIS C
  4. HYDROXYZ HCL SOL [Concomitant]
  5. FLUOCINONIDE CRE [Concomitant]
  6. ZOLOFT [Concomitant]
  7. VITAMIN D [Concomitant]
  8. VITAMIN C [Concomitant]
  9. VITAMIN E BAR [Concomitant]
  10. LACTULOSE SOL [Concomitant]
  11. PRISTIQ [Concomitant]
  12. ESTRADIOL DIS [Concomitant]
  13. FOLIC ACID [Concomitant]
  14. B COMPLEX [Concomitant]
  15. OMEPRAZLE [Concomitant]
  16. DIAZEPAM [Concomitant]
  17. CELEXA [Concomitant]
  18. XIFAXAN [Concomitant]
  19. REMERON [Concomitant]

REACTIONS (3)
  - Vision blurred [Unknown]
  - Fatigue [Unknown]
  - Anaemia [Unknown]
